FAERS Safety Report 12543956 (Version 1)
Quarter: 2016Q3

REPORT INFORMATION
  Report Type: Spontaneous
  Country: US (occurrence: None)
  Receive Date: 20160708
  Receipt Date: 20160708
  Transmission Date: 20161109
  Serious: Yes (Other)
  Sender: FDA-Public Use
  Company Number: None

PATIENT
  Age: 14 Month
  Sex: Female
  Weight: 9.3 kg

DRUGS (1)
  1. ACTIDOSE [Suspect]
     Active Substance: ACTIVATED CHARCOAL\SORBITOL
     Indication: INTENTIONAL PRODUCT MISUSE
     Route: 048
     Dates: start: 20160706, end: 20160706

REACTIONS (1)
  - Diarrhoea [None]

NARRATIVE: CASE EVENT DATE: 20160706
